FAERS Safety Report 6301893-3 (Version None)
Quarter: 2009Q3

REPORT INFORMATION
  Report Type: 
  Country: None (occurrence: None)
  Receive Date: 20090807
  Receipt Date: 20090727
  Transmission Date: 20100115
  Serious: Yes (Other)
  Sender: FDA-Public Use
  Company Number: US-ALEXION-A200900548

PATIENT
  Sex: Female

DRUGS (4)
  1. SOLIRIS [Suspect]
     Indication: PAROXYSMAL NOCTURNAL HAEMOGLOBINURIA
     Dosage: 600 MG, QW
     Route: 042
     Dates: start: 20081023, end: 20081101
  2. SOLIRIS [Suspect]
     Dosage: 900 MG, Q2W
     Route: 042
     Dates: start: 20081120
  3. FOLIC ACID [Concomitant]
     Indication: PAROXYSMAL NOCTURNAL HAEMOGLOBINURIA
     Dosage: UNK
     Route: 048
  4. PREDNISONE [Concomitant]
     Dosage: UNK
     Route: 048

REACTIONS (6)
  - ECZEMA NUMMULAR [None]
  - HAEMOGLOBIN DECREASED [None]
  - MYALGIA [None]
  - STAPHYLOCOCCAL INFECTION [None]
  - STASIS DERMATITIS [None]
  - THROMBOSIS [None]
